FAERS Safety Report 8723601 (Version 2)
Quarter: 2013Q4

REPORT INFORMATION
  Report Type: Spontaneous
  Country: US (occurrence: US)
  Receive Date: 20120814
  Receipt Date: 20131101
  Transmission Date: 20140711
  Serious: No
  Sender: FDA-Public Use
  Company Number: US-009507513-1208USA004512

PATIENT
  Age: 63 Year
  Sex: Male

DRUGS (4)
  1. VICTRELIS [Suspect]
     Indication: HEPATITIS C
     Dosage: 800 MG, TID
     Route: 048
     Dates: start: 201203
  2. PEGINTRON [Suspect]
     Dosage: 120 MICROGRAM, QW
     Route: 058
     Dates: start: 201205
  3. RIBASPHERE [Suspect]
  4. PROCRIT [Concomitant]
     Dosage: UNK
     Dates: start: 2012

REACTIONS (2)
  - Cellulitis [Recovering/Resolving]
  - Inappropriate schedule of drug administration [Unknown]
